FAERS Safety Report 9500230 (Version 1)
Quarter: 2013Q3

REPORT INFORMATION
  Report Type: Report from Study
  Country: CA (occurrence: CA)
  Receive Date: 20130905
  Receipt Date: 20130905
  Transmission Date: 20140515
  Serious: Yes (Other)
  Sender: FDA-Public Use
  Company Number: CA-JNJFOC-20130900902

PATIENT
  Age: 65 Year
  Sex: Female
  Weight: 89.1 kg

DRUGS (6)
  1. REMICADE [Suspect]
     Indication: CROHN^S DISEASE
     Route: 042
     Dates: start: 20100831
  2. PANTOLOC [Concomitant]
     Route: 065
  3. ATIVAN [Concomitant]
     Route: 065
  4. VITAMIN D [Concomitant]
     Route: 065
  5. CALCIUM [Concomitant]
     Route: 065
  6. B12 [Concomitant]
     Route: 065

REACTIONS (2)
  - Rotator cuff repair [Unknown]
  - Joint injury [Unknown]
